FAERS Safety Report 8493600-3 (Version None)
Quarter: 2012Q3

REPORT INFORMATION
  Report Type: 
  Country: None (occurrence: None)
  Receive Date: 20120706
  Receipt Date: 20120703
  Transmission Date: 20120928
  Serious: Yes (Other)
  Sender: FDA-Public Use
  Company Number: FI-PFIZER INC-2012152953

PATIENT
  Sex: Male

DRUGS (10)
  1. ZOLPIDEM TATRATE [Concomitant]
     Dosage: 5-10MG , AS NEEDED
  2. EXPROS [Concomitant]
     Dosage: 0.4 MG, 1X/DAY
  3. DIFORMIN RETARD [Concomitant]
     Dosage: ONE TABLET ONCE DAILY
  4. METHOTREXATE SODIUM [Concomitant]
     Dosage: UNK
  5. SULFASALAZINE [Suspect]
     Indication: SERONEGATIVE ARTHRITIS
     Dosage: 3+3 TABLETS DAILY
     Dates: end: 20120530
  6. IBUPROFEN [Concomitant]
     Dosage: 800 MG, AS NEEDED
  7. LEVOTHYROXINE SODIUM [Concomitant]
     Dosage: 0.1 MG, 1X/DAY
  8. GEFINA [Concomitant]
     Dosage: 5 MG, 1X/DAY
  9. PANTOPRAZOLE [Concomitant]
     Dosage: 20 MG, 1X/DAY
  10. PREDNISOLONE [Concomitant]
     Dosage: UNK

REACTIONS (2)
  - DEPRESSION [None]
  - PAIN [None]
